FAERS Safety Report 18683395 (Version 1)
Quarter: 2020Q4

REPORT INFORMATION
  Report Type: Spontaneous
  Country: UA (occurrence: UA)
  Receive Date: 20201230
  Receipt Date: 20201230
  Transmission Date: 20210114
  Serious: Yes (Other)
  Sender: FDA-Public Use
  Company Number: UA-B.I. PHARMACEUTICALS,INC./RIDGEFIELD-2020-BI-072239

PATIENT
  Age: 43 Year
  Sex: Female

DRUGS (1)
  1. JARDIANCE [Suspect]
     Active Substance: EMPAGLIFLOZIN
     Indication: TYPE 2 DIABETES MELLITUS
     Dosage: DOCTOR DID NOT REPORT DOSAGE
     Route: 048

REACTIONS (6)
  - Pollakiuria [Unknown]
  - Dizziness [Unknown]
  - Nausea [Unknown]
  - Malaise [Unknown]
  - Ketosis [Unknown]
  - Asthenia [Unknown]
